FAERS Safety Report 10399363 (Version 1)
Quarter: 2014Q1

REPORT INFORMATION
  Report Type: Spontaneous
  Country: US (occurrence: None)
  Receive Date: 20130815
  Receipt Date: 20130815
  Transmission Date: 20141002
  Serious: Yes (Other)
  Sender: FDA-Public Use
  Company Number: ADR-2012-01807

PATIENT
  Sex: Female

DRUGS (3)
  1. BACLOFEN INTRATHECAL (BACLOFEN INJECTION) [Suspect]
     Indication: PAIN
  2. BUPRIVACAINE [Concomitant]
  3. MORPHINE DRUG [Concomitant]

REACTIONS (6)
  - Feeling abnormal [None]
  - Somnolence [None]
  - Depressed mood [None]
  - Drug withdrawal syndrome [None]
  - Influenza like illness [None]
  - Diarrhoea [None]
